FAERS Safety Report 5869613-4 (Version None)
Quarter: 2008Q3

REPORT INFORMATION
  Report Type: 
  Country: None (occurrence: None)
  Receive Date: 20080904
  Receipt Date: 20080304
  Transmission Date: 20090109
  Serious: No
  Sender: FDA-Public Use
  Company Number: US-KINGPHARMUSA00001-K200800288

PATIENT

DRUGS (1)
  1. CYTOMEL [Suspect]
     Indication: HYPOTHYROIDISM
     Dosage: 5 MCG, BID
     Route: 048
     Dates: start: 20070701

REACTIONS (1)
  - ALOPECIA [None]
